FAERS Safety Report 4554305-4 (Version None)
Quarter: 2005Q1

REPORT INFORMATION
  Report Type: 
  Country: None (occurrence: None)
  Receive Date: 20050118
  Receipt Date: 20050110
  Transmission Date: 20050727
  Serious: Yes (Other)
  Sender: FDA-Public Use
  Company Number: FR-GLAXOSMITHKLINE-B0363886A

PATIENT
  Age: 38 Year
  Sex: Female

DRUGS (4)
  1. WELLVONE [Suspect]
     Indication: INFECTION PROPHYLAXIS
     Route: 048
     Dates: start: 20041226, end: 20050108
  2. COMBIVIR [Suspect]
     Indication: HIV INFECTION
     Route: 048
     Dates: end: 20050108
  3. THALIDOMIDE [Concomitant]
     Indication: MOUTH ULCERATION
     Route: 065
     Dates: start: 20050101, end: 20050108
  4. GROWTH FACTOR [Concomitant]
     Indication: NEUTROPENIA
     Route: 065
     Dates: start: 20041201, end: 20041201

REACTIONS (3)
  - AGRANULOCYTOSIS [None]
  - MOUTH ULCERATION [None]
  - VIRAL INFECTION [None]
